FAERS Safety Report 4785929-7 (Version None)
Quarter: 2005Q4

REPORT INFORMATION
  Report Type: 
  Country: None (occurrence: None)
  Receive Date: 20051003
  Receipt Date: 20050926
  Transmission Date: 20060501
  Serious: Yes (Hospitalization, Other)
  Sender: FDA-Public Use
  Company Number: US-BRACCO-BDI-007547

PATIENT
  Sex: Female
  Weight: 89 kg

DRUGS (9)
  1. ISOVUE-128 [Suspect]
     Indication: CORONARY ARTERY DISEASE
     Route: 042
     Dates: start: 20050325, end: 20050325
  2. ISOVUE-128 [Suspect]
     Route: 042
     Dates: start: 20050325, end: 20050325
  3. BIVALIRUDIN [Suspect]
     Indication: ACUTE CORONARY SYNDROME
     Dosage: 30 MG/KG/HR
     Route: 042
  4. BIVALIRUDIN [Suspect]
     Dosage: 8.1 ML
     Route: 042
  5. BIVALIRUDIN [Suspect]
     Dosage: 4 MG/KG/HR
     Route: 042
     Dates: start: 20050325, end: 20050325
  6. CLOPIDOGREL [Concomitant]
     Route: 050
  7. HYDROCHLOROTHIAZIDE [Concomitant]
     Route: 050
  8. ASPIRIN [Concomitant]
     Route: 050
  9. LISINOPRIL [Concomitant]
     Route: 050

REACTIONS (6)
  - ANAEMIA [None]
  - CATHETER SITE HAEMATOMA [None]
  - FLUID INTAKE REDUCED [None]
  - PROCEDURAL COMPLICATION [None]
  - RENAL FAILURE ACUTE [None]
  - VASCULAR PSEUDOANEURYSM [None]
